FAERS Safety Report 24663723 (Version 1)
Quarter: 2024Q4

REPORT INFORMATION
  Report Type: Spontaneous
  Country: JP (occurrence: JP)
  Receive Date: 20241126
  Receipt Date: 20241126
  Transmission Date: 20250115
  Serious: Yes (Other)
  Sender: SPECGX
  Company Number: JP-SPECGX-T202402272

PATIENT
  Age: 6 Decade
  Sex: Female

DRUGS (2)
  1. METHADONE [Suspect]
     Active Substance: METHADONE HYDROCHLORIDE
     Indication: Cancer pain
     Dosage: DAILY
     Route: 048
  2. MORPHINE HYDROCHLORIDE [Concomitant]
     Active Substance: MORPHINE HYDROCHLORIDE
     Indication: Cancer pain
     Dosage: 6 MILLIGRAM, QD
     Route: 065

REACTIONS (4)
  - Fistula [Unknown]
  - Metastasis [Unknown]
  - Pain [Unknown]
  - Somnolence [Recovering/Resolving]
